FAERS Safety Report 6182909-4 (Version None)
Quarter: 2009Q2

REPORT INFORMATION
  Report Type: 
  Country: None (occurrence: None)
  Receive Date: 20090507
  Receipt Date: 20090427
  Transmission Date: 20091009
  Serious: Yes (Other)
  Sender: FDA-Public Use
  Company Number: US-MERCK-0905USA00240

PATIENT
  Sex: Male

DRUGS (1)
  1. IVOMEC [Suspect]
     Indication: DRUG ADMINISTRATION ERROR
     Route: 065
     Dates: start: 20090427, end: 20090427

REACTIONS (2)
  - ACCIDENTAL EXPOSURE [None]
  - EYE IRRITATION [None]
